FAERS Safety Report 5767615-X (Version None)
Quarter: 2008Q2

REPORT INFORMATION
  Report Type: 
  Country: None (occurrence: None)
  Receive Date: 20080612
  Receipt Date: 20080605
  Transmission Date: 20081010
  Serious: Yes (Hospitalization)
  Sender: FDA-Public Use
  Company Number: US-SANOFI-SYNTHELABO-A03200801352

PATIENT
  Sex: Female
  Weight: 58.1 kg

DRUGS (18)
  1. GLIPIZIDE [Concomitant]
     Indication: DIABETES MELLITUS
     Dosage: UNK
     Route: 048
     Dates: start: 20080101
  2. AMBIEN [Suspect]
     Indication: INSOMNIA
     Dosage: TOOK 1/2 TABLET (5 MG) THE NIGHT BEFORE AT ABOUT 12 PM AND THE OTHER HALF (5 MG) AT ABOUT 3:30 AM
     Route: 048
     Dates: start: 20080313
  3. NEVANAC [Concomitant]
     Indication: DRUG USE FOR UNKNOWN INDICATION
     Dosage: 1 GTT OS TID X 5 DAYS
     Route: 047
     Dates: start: 20080131
  4. ACULAR [Concomitant]
     Indication: DRUG USE FOR UNKNOWN INDICATION
     Dosage: 1 GTT QID PRN
     Route: 047
     Dates: start: 20070129
  5. LIPITOR [Concomitant]
     Indication: DRUG USE FOR UNKNOWN INDICATION
     Route: 048
  6. ALDACTONE [Concomitant]
     Indication: DRUG USE FOR UNKNOWN INDICATION
     Route: 048
  7. LASIX [Concomitant]
     Indication: DRUG USE FOR UNKNOWN INDICATION
     Route: 048
  8. ASPIRIN [Concomitant]
     Indication: DRUG USE FOR UNKNOWN INDICATION
     Dosage: UNK
     Route: 048
  9. PLAVIX [Concomitant]
     Indication: DRUG USE FOR UNKNOWN INDICATION
     Dosage: UNK
     Route: 048
  10. FOSAMAX [Concomitant]
     Indication: DRUG USE FOR UNKNOWN INDICATION
     Dosage: UNK
     Route: 048
  11. MEDROL [Concomitant]
     Indication: DRUG USE FOR UNKNOWN INDICATION
     Route: 048
  12. DIOVAN [Concomitant]
     Indication: DRUG USE FOR UNKNOWN INDICATION
     Dosage: UNK
     Route: 048
  13. METFORMIN HCL [Concomitant]
     Indication: DRUG USE FOR UNKNOWN INDICATION
     Dosage: UNK
     Route: 048
  14. AVANDIA [Concomitant]
     Indication: DRUG USE FOR UNKNOWN INDICATION
     Dosage: UNK
     Route: 048
  15. ATENOLOL [Concomitant]
     Indication: DRUG USE FOR UNKNOWN INDICATION
     Dosage: UNK
     Route: 048
  16. MAXZIDE [Concomitant]
     Indication: DRUG USE FOR UNKNOWN INDICATION
     Dosage: UNK
     Route: 048
  17. CALCIUM SUPPLEMENTS [Concomitant]
     Indication: DRUG USE FOR UNKNOWN INDICATION
     Dosage: UNK
     Route: 065
  18. TEMAZEPAM [Concomitant]
     Dosage: UNK
     Route: 048

REACTIONS (15)
  - AMNESIA [None]
  - BLOOD GLUCOSE INCREASED [None]
  - CONTUSION [None]
  - FALL [None]
  - HAEMATOMA [None]
  - INTENTIONAL DRUG MISUSE [None]
  - MALAISE [None]
  - MUSCULOSKELETAL STIFFNESS [None]
  - PAIN [None]
  - PERIORBITAL HAEMATOMA [None]
  - SKIN LACERATION [None]
  - SLEEP-RELATED EATING DISORDER [None]
  - SOMNAMBULISM [None]
  - SYNCOPE [None]
  - WOUND HAEMORRHAGE [None]
